FAERS Safety Report 20159523 (Version 1)
Quarter: 2021Q4

REPORT INFORMATION
  Report Type: Spontaneous
  Country: CN (occurrence: CN)
  Receive Date: 20211208
  Receipt Date: 20211208
  Transmission Date: 20220303
  Serious: Yes (Life-Threatening, Other)
  Sender: FDA-Public Use
  Company Number: CN-BEH-2021138997

PATIENT
  Age: 71 Year
  Sex: Male
  Weight: 61 kg

DRUGS (3)
  1. ALBURX [Suspect]
     Active Substance: ALBUMIN HUMAN
     Indication: Hypoproteinaemia
     Dosage: 10 GRAM, QD
     Route: 041
     Dates: start: 20211126, end: 20211126
  2. ALBURX [Suspect]
     Active Substance: ALBUMIN HUMAN
     Indication: Oedema peripheral
  3. ALBURX [Suspect]
     Active Substance: ALBUMIN HUMAN
     Indication: Glomerulonephritis membranous

REACTIONS (15)
  - Anaphylactic shock [Recovered/Resolved]
  - Pruritus [Recovered/Resolved]
  - Limb discomfort [Recovered/Resolved]
  - Pruritus [Recovered/Resolved]
  - Rash [Recovered/Resolved]
  - Rash [Recovered/Resolved]
  - Chest discomfort [Recovered/Resolved]
  - Hyperhidrosis [Recovered/Resolved]
  - Oxygen saturation decreased [Recovered/Resolved]
  - Hypotension [Recovered/Resolved]
  - Heart rate decreased [Recovered/Resolved]
  - Breath sounds abnormal [Recovered/Resolved]
  - Rales [Recovered/Resolved]
  - Oedema peripheral [Recovered/Resolved]
  - PO2 decreased [Recovered/Resolved]

NARRATIVE: CASE EVENT DATE: 20211126
